FAERS Safety Report 5347917-1 (Version None)
Quarter: 2007Q2

REPORT INFORMATION
  Report Type: 
  Country: None (occurrence: None)
  Receive Date: 20070606
  Receipt Date: 20070601
  Transmission Date: 20071010
  Serious: Yes (Hospitalization)
  Sender: FDA-Public Use
  Company Number: A0653804A

PATIENT
  Age: 67 Year
  Sex: Male

DRUGS (13)
  1. AVANDIA [Suspect]
     Dosage: 4MG TWICE PER DAY
     Route: 048
     Dates: end: 20070530
  2. HUMULIN R [Concomitant]
  3. GLYBURIDE [Concomitant]
  4. PREVACID [Concomitant]
  5. LISINOPRIL [Concomitant]
  6. TOPROL-XL [Concomitant]
  7. NEURONTIN [Concomitant]
  8. FOLIC ACID [Concomitant]
  9. METHOTREXATE SODIUM [Concomitant]
  10. LESCOL [Concomitant]
  11. NIACIN [Concomitant]
  12. OMEGA 3 [Concomitant]
  13. ASPIRIN [Concomitant]

REACTIONS (1)
  - CARDIAC DISORDER [None]
